FAERS Safety Report 4933319-6 (Version None)
Quarter: 2006Q1

REPORT INFORMATION
  Report Type: 
  Country: None (occurrence: None)
  Receive Date: 20060306
  Receipt Date: 20060227
  Transmission Date: 20060701
  Serious: Yes (Hospitalization)
  Sender: FDA-Public Use
  Company Number: US-BRISTOL-MYERS SQUIBB COMPANY-13297023

PATIENT
  Age: 57 Year
  Sex: Male
  Weight: 102 kg

DRUGS (15)
  1. GATIFLOXACIN [Suspect]
     Indication: SKIN ULCER
     Dosage: STARTED 13-APR
  2. CEPHALEXIN [Concomitant]
     Indication: CELLULITIS
     Dosage: STARTED ON 25-MAR
  3. AMOXICILLIN AND CLAVULANATE POTASSIUM [Concomitant]
     Indication: CELLULITIS
     Dosage: STARTED MAR 29
  4. ACETAMINOPHEN AND HYDROCODONE BITARTRATE [Concomitant]
     Indication: PAIN
     Dosage: 19-APR HYDROCODONE 5 MG AND ACETAMINOPHEN 500 MG 1-2 DOSES ONCE 6 HOURS AS NEEDED.
  5. SIMVASTATIN [Concomitant]
  6. RANITIDINE [Concomitant]
  7. METOPROLOL [Concomitant]
  8. NIACIN [Concomitant]
  9. INDOMETHACIN [Concomitant]
  10. INDOMETHACIN [Concomitant]
  11. DOCUSATE SODIUM [Concomitant]
  12. AMITRIPTYLINE HCL [Concomitant]
  13. FUROSEMIDE [Concomitant]
     Indication: SWELLING
  14. ASPIRIN + CAFFEINE + BUTALBITAL [Concomitant]
     Indication: HEADACHE
     Dosage: 325 MG/50 MG/40 MG
  15. DIPHENHYDRAMINE HCL [Concomitant]
     Indication: INSOMNIA

REACTIONS (1)
  - DIABETES MELLITUS NON-INSULIN-DEPENDENT [None]
